FAERS Safety Report 4866130-5 (Version None)
Quarter: 2005Q4

REPORT INFORMATION
  Report Type: 
  Country: None (occurrence: None)
  Receive Date: 20051227
  Receipt Date: 20051130
  Transmission Date: 20060501
  Serious: Yes (Life-Threatening, Hospitalization)
  Sender: FDA-Public Use
  Company Number: NL-AVENTIS-200520584GDDC

PATIENT
  Age: 14 Year
  Sex: Male

DRUGS (5)
  1. TELFAST [Suspect]
     Indication: HYPERSENSITIVITY
     Route: 048
     Dates: end: 20051201
  2. AZITHROMYCIN [Suspect]
     Indication: RESPIRATORY TRACT INFECTION
     Dates: start: 20051006, end: 20051009
  3. AZITHROMYCIN [Suspect]
     Dates: start: 20051114, end: 20051117
  4. SERETIDE [Concomitant]
     Dosage: DOSE: 1 INHALATION
     Route: 055
     Dates: start: 20041115, end: 20050601
  5. FLIXONASE [Concomitant]
     Dosage: DOSE: 1 INHALATION BOTH NOSTRILS
     Route: 045
     Dates: start: 20050429, end: 20050529

REACTIONS (4)
  - DRUG INTERACTION [None]
  - ELECTROCARDIOGRAM QT PROLONGED [None]
  - RESPIRATORY TRACT INFECTION [None]
  - SUPRAVENTRICULAR TACHYCARDIA [None]
